FAERS Safety Report 8973726 (Version 1)
Quarter: 2012Q4

REPORT INFORMATION
  Report Type: 
  Country: TR (occurrence: TR)
  Receive Date: 20121218
  Receipt Date: 20121218
  Transmission Date: 20130627
  Serious: Yes (Death)
  Sender: FDA-Public Use
  Company Number: TR-ALEXION PHARMACEUTICALS INC.-A201202384

PATIENT
  Age: 49 Year
  Sex: Female

DRUGS (3)
  1. SOLIRIS 300MG [Suspect]
     Indication: HAEMOLYTIC URAEMIC SYNDROME
     Dosage: 900 mg, single
     Route: 042
     Dates: start: 20121130, end: 20121130
  2. ANTIBIOTICS [Concomitant]
  3. STEROID ANTIBACTERIALS [Concomitant]

REACTIONS (2)
  - Circulatory collapse [Fatal]
  - Respiratory failure [Fatal]
